FAERS Safety Report 5755161-9 (Version None)
Quarter: 2008Q2

REPORT INFORMATION
  Report Type: 
  Country: None (occurrence: None)
  Receive Date: 20080529
  Receipt Date: 20080529
  Transmission Date: 20081010
  Serious: No
  Sender: FDA-Public Use
  Company Number: None

PATIENT
  Age: 46 Year
  Sex: Female

DRUGS (1)
  1. CREST PRO-HEALTH RINSE [Suspect]
     Indication: DENTAL CARE
     Dosage: CAP-FUL 1 X PER DAY
     Dates: start: 20080101, end: 20080201

REACTIONS (1)
  - TOOTH DISCOLOURATION [None]
